FAERS Safety Report 7903193-4 (Version None)
Quarter: 2011Q4

REPORT INFORMATION
  Report Type: 
  Country: None (occurrence: None)
  Receive Date: 20111109
  Receipt Date: 20111027
  Transmission Date: 20120403
  Serious: Yes (Hospitalization, Other)
  Sender: FDA-Public Use
  Company Number: JP-AMGEN-JPNSP2011056894

PATIENT
  Age: 71 Year
  Sex: Female

DRUGS (6)
  1. EPADEL                             /01682401/ [Concomitant]
     Dosage: UNK
  2. ENBREL [Suspect]
     Indication: RHEUMATOID ARTHRITIS
     Dosage: 25 MG, WEEKLY
     Route: 058
     Dates: start: 20100501, end: 20111014
  3. AZULFIDINE [Concomitant]
     Dosage: UNK
  4. PREDNISOLONE [Concomitant]
     Dosage: UNK
  5. CANDESARTAN CILEXETIL [Concomitant]
     Dosage: 8 MG, UNK
  6. RHEUMATREX [Concomitant]
     Dosage: UNK

REACTIONS (2)
  - LOSS OF CONSCIOUSNESS [None]
  - CONTUSION [None]
